FAERS Safety Report 6657382-X (Version None)
Quarter: 2010Q1

REPORT INFORMATION
  Report Type: 
  Country: None (occurrence: None)
  Receive Date: 20100330
  Receipt Date: 20100323
  Transmission Date: 20100710
  Serious: Yes (Other)
  Sender: FDA-Public Use
  Company Number: DE-NAPPMUNDI-DEU-2010-0005816

PATIENT
  Sex: Female

DRUGS (10)
  1. PALLADON RETARD 8 MG [Suspect]
     Indication: ARTHRALGIA
     Dosage: 8 MG, TID
     Route: 048
     Dates: start: 20091101
  2. JURNISTA [Suspect]
     Indication: ARTHRALGIA
     Dosage: UNK
     Dates: start: 20080101, end: 20091101
  3. PREDNISOLONE [Concomitant]
  4. KATADOLON                          /00890102/ [Concomitant]
  5. CELEBREX [Concomitant]
  6. LYRICA [Concomitant]
  7. METOPROLOL SUCCINATE [Concomitant]
  8. THYROXIN [Concomitant]
  9. SIMVASTATIN [Concomitant]
  10. ASPIRIN [Concomitant]

REACTIONS (3)
  - MUSCLE SPASMS [None]
  - TOOTH FRACTURE [None]
  - TOOTH LOSS [None]
